FAERS Safety Report 17082141 (Version 2)
Quarter: 2019Q4

REPORT INFORMATION
  Report Type: Spontaneous
  Country: US (occurrence: US)
  Receive Date: 20191127
  Receipt Date: 20191204
  Transmission Date: 20200122
  Serious: No
  Sender: FDA-Public Use
  Company Number: US-PFIZER INC-2019509312

PATIENT
  Sex: Female

DRUGS (4)
  1. MELOXICAM. [Concomitant]
     Active Substance: MELOXICAM
     Dosage: 15 MG, UNK
  2. CELEBREX [Suspect]
     Active Substance: CELECOXIB
     Indication: RHEUMATOID ARTHRITIS
     Dosage: UNK
  3. CELEBREX [Suspect]
     Active Substance: CELECOXIB
     Indication: OSTEOARTHRITIS
  4. TRAZODONE [Concomitant]
     Active Substance: TRAZODONE HYDROCHLORIDE
     Dosage: 200 MG, UNK

REACTIONS (14)
  - Chest discomfort [Unknown]
  - Feeling hot [Unknown]
  - Presyncope [Unknown]
  - Cold sweat [Unknown]
  - Paraesthesia oral [Unknown]
  - Paraesthesia [Unknown]
  - Hypoaesthesia [Unknown]
  - Palpitations [Unknown]
  - Hypoaesthesia oral [Unknown]
  - Insomnia [Unknown]
  - Nervousness [Unknown]
  - Feeling abnormal [Unknown]
  - Dizziness [Unknown]
  - Rhinorrhoea [Unknown]
